FAERS Safety Report 9684175 (Version 2)
Quarter: 2014Q2

REPORT INFORMATION
  Report Type: Spontaneous
  Country: US (occurrence: US)
  Receive Date: 20131112
  Receipt Date: 20140417
  Transmission Date: 20141212
  Serious: Yes (Death, Hospitalization)
  Sender: FDA-Public Use
  Company Number: US-B.I. PHARMACEUTICALS,INC./RIDGEFIELD-2013-BI-36358BP

PATIENT
  Sex: Female
  Weight: 56.7 kg

DRUGS (3)
  1. PRADAXA [Suspect]
     Indication: ATRIAL FIBRILLATION
     Route: 065
     Dates: start: 20110624, end: 20111225
  2. CARVEDILOL [Concomitant]
     Route: 065
     Dates: start: 2009, end: 2011
  3. POTASSIUM [Concomitant]
     Route: 065
     Dates: start: 2009, end: 2011

REACTIONS (4)
  - Colitis [Fatal]
  - Hypotension [Fatal]
  - Anaemia [Fatal]
  - Hypothermia [Unknown]
